FAERS Safety Report 18297316 (Version 1)
Quarter: 2020Q3

REPORT INFORMATION
  Report Type: Spontaneous
  Country: US (occurrence: US)
  Receive Date: 20200922
  Receipt Date: 20200922
  Transmission Date: 20201103
  Serious: Yes (Other)
  Sender: FDA-Public Use
  Company Number: US-BIOCODEX SA-202001191

PATIENT

DRUGS (1)
  1. DIACOMIT [Suspect]
     Active Substance: STIRIPENTOL
     Indication: EPILEPSY
     Dosage: 250MG TWICE A DAY
     Dates: start: 20190626

REACTIONS (2)
  - Product dose omission issue [Unknown]
  - Seizure [Unknown]

NARRATIVE: CASE EVENT DATE: 20200906
